FAERS Safety Report 7920387-2 (Version None)
Quarter: 2011Q4

REPORT INFORMATION
  Report Type: 
  Country: None (occurrence: None)
  Receive Date: 20111117
  Receipt Date: 20111110
  Transmission Date: 20120403
  Serious: Yes (Life-Threatening, Hospitalization, Disabling, Other)
  Sender: FDA-Public Use
  Company Number: CA-NOVOPROD-339314

PATIENT

DRUGS (2)
  1. VICTOZA [Suspect]
     Indication: TYPE 2 DIABETES MELLITUS
     Dosage: 0.6 MG, QD
     Route: 058
     Dates: start: 20110503, end: 20110813
  2. LYRICA [Concomitant]
     Dosage: 1560 (UNITS UNSPECIFIED)
     Route: 048
     Dates: start: 20110401

REACTIONS (3)
  - FATIGUE [None]
  - BLOOD CREATINE INCREASED [None]
  - RENAL TUBULAR NECROSIS [None]
